FAERS Safety Report 10121316 (Version 1)
Quarter: 2014Q2

REPORT INFORMATION
  Report Type: Report from Study
  Country: BR (occurrence: BR)
  Receive Date: 20140425
  Receipt Date: 20140425
  Transmission Date: 20141212
  Serious: Yes (Hospitalization, Other)
  Sender: FDA-Public Use
  Company Number: PHHY2014BR050524

PATIENT
  Sex: Female
  Weight: 53 kg

DRUGS (7)
  1. DIOVAN HCT [Suspect]
     Indication: HYPERTENSION
     Dosage: 1 TABLET (320/25 MG) DAILY
     Route: 048
     Dates: start: 2011
  2. DIOVAN HCT [Suspect]
     Dosage: 1 TABLET (320/25 MG) DAILY
     Route: 048
  3. TORLOS [Concomitant]
     Dosage: UNK UKN, UNK
  4. SIMVASTATIN [Concomitant]
     Dosage: 20 MG, UNK
  5. ECARIL [Concomitant]
     Dosage: 81 MG, UNK
  6. ASPIRINA INFANTIL [Concomitant]
     Dosage: UNK UKN, UNK
  7. AMLODIPINE [Concomitant]
     Dosage: 5 MG, UNK

REACTIONS (3)
  - Cerebrovascular accident [Recovering/Resolving]
  - Venous occlusion [Recovering/Resolving]
  - Malaise [Recovering/Resolving]
